FAERS Safety Report 5955710-1 (Version None)
Quarter: 2008Q4

REPORT INFORMATION
  Report Type: 
  Country: None (occurrence: None)
  Receive Date: 20081117
  Receipt Date: 20081106
  Transmission Date: 20090506
  Serious: Yes (Hospitalization, Other)
  Sender: FDA-Public Use
  Company Number: JP-PFIZER INC-2008066203

PATIENT
  Sex: Female
  Weight: 71 kg

DRUGS (8)
  1. GENOTROPIN [Suspect]
     Indication: GROWTH HORMONE DEFICIENCY
     Route: 058
     Dates: start: 20000623, end: 20050915
  2. GENOTROPIN [Suspect]
     Indication: BODY HEIGHT BELOW NORMAL
  3. GENOTROPIN [Suspect]
  4. DESMOPRESSIN ACETATE [Concomitant]
     Indication: DIABETES INSIPIDUS
     Route: 055
     Dates: start: 20000623
  5. LEVOTHYROXINE SODIUM [Concomitant]
     Indication: HYPOTHYROIDISM
     Route: 048
     Dates: start: 20000623
  6. CORTRIL [Concomitant]
     Indication: ADRENAL INSUFFICIENCY
     Route: 048
     Dates: start: 20000623
  7. PROVERA [Concomitant]
     Indication: OVARIAN FAILURE
     Route: 048
     Dates: start: 20050805
  8. PREMARIN [Concomitant]
     Indication: OVARIAN FAILURE
     Route: 048
     Dates: start: 20030131

REACTIONS (2)
  - CRANIOPHARYNGIOMA [None]
  - NEOPLASM RECURRENCE [None]
